FAERS Safety Report 9781892 (Version 1)
Quarter: 2013Q4

REPORT INFORMATION
  Report Type: Spontaneous
  Country: GB (occurrence: GB)
  Receive Date: 20131225
  Receipt Date: 20131225
  Transmission Date: 20140711
  Serious: Yes (Other)
  Sender: FDA-Public Use
  Company Number: GB-ACCORD-020876

PATIENT
  Age: 29 Year
  Sex: Male
  Weight: 71.5 kg

DRUGS (4)
  1. TRAMADOL [Suspect]
     Indication: BACK PAIN
     Dates: start: 20131120
  2. CO-CODAMOL [Concomitant]
     Indication: PAIN
     Dosage: ON GOING. 30/500MG
     Dates: start: 201004
  3. DIAZEPAM [Concomitant]
     Indication: ANXIETY
     Dosage: ON GOING
     Dates: start: 201108
  4. AMITRIPTYLINE [Concomitant]
     Indication: INSOMNIA
     Dosage: ON GOING
     Dates: start: 201004

REACTIONS (4)
  - Somnolence [Recovering/Resolving]
  - Fatigue [Recovering/Resolving]
  - Depressed level of consciousness [Recovering/Resolving]
  - Apathy [Recovering/Resolving]
